FAERS Safety Report 13758646 (Version 1)
Quarter: 2017Q3

REPORT INFORMATION
  Report Type: Spontaneous
  Country: US (occurrence: US)
  Receive Date: 20170716
  Receipt Date: 20170716
  Transmission Date: 20171127
  Serious: Yes (Disabling)
  Sender: FDA-Public Use
  Company Number: None

PATIENT
  Age: 64 Year
  Sex: Female
  Weight: 42.75 kg

DRUGS (12)
  1. TRAZODONE [Suspect]
     Active Substance: TRAZODONE HYDROCHLORIDE
     Indication: INSOMNIA
     Dosage: ?          OTHER STRENGTH:TABLET;QUANTITY:30 TABLET(S);?AT BEDTIME ORAL
     Route: 048
     Dates: start: 20170605, end: 20170712
  2. REQUIP [Concomitant]
     Active Substance: ROPINIROLE HYDROCHLORIDE
  3. ALBUTEROL INH [Concomitant]
     Active Substance: ALBUTEROL
  4. IMITREX [Concomitant]
     Active Substance: SUMATRIPTAN SUCCINATE
  5. OCUVITETYLENOL ES [Concomitant]
  6. MVI [Concomitant]
     Active Substance: VITAMINS
  7. PROLIA [Concomitant]
     Active Substance: DENOSUMAB
  8. CALCIUM WITH VIT D/ MIN [Concomitant]
  9. HORIZANT [Concomitant]
     Active Substance: GABAPENTIN ENACARBIL
  10. EXCEDRIN MIGRAINE [Concomitant]
     Active Substance: ACETAMINOPHEN\ASPIRIN\CAFFEINE
  11. MELITONIN [Concomitant]
  12. RELPAX [Concomitant]
     Active Substance: ELETRIPTAN HYDROBROMIDE

REACTIONS (7)
  - Paraesthesia oral [None]
  - Hypoaesthesia oral [None]
  - Peripheral swelling [None]
  - Tongue oedema [None]
  - Pain in jaw [None]
  - Nausea [None]
  - Vomiting [None]

NARRATIVE: CASE EVENT DATE: 20170712
